FAERS Safety Report 9411922 (Version 1)
Quarter: 2013Q2

REPORT INFORMATION
  Report Type: Spontaneous
  Country: US (occurrence: None)
  Receive Date: 20130424
  Receipt Date: 20130424
  Transmission Date: 20140414
  Serious: Yes (Other)
  Sender: FDA-Public Use
  Company Number: E2B_00000767

PATIENT
  Age: 59 Year
  Sex: Female

DRUGS (2)
  1. QUINAPRIL [Suspect]
     Indication: HYPERTENSION
     Dosage: 10MG (10MG, 1 IN 1D) PER ORAL
     Route: 048
     Dates: start: 2012
  2. TRIAMTERENE/HYDROCHLOROTHIAZIDE [Concomitant]

REACTIONS (2)
  - Rheumatoid arthritis [None]
  - Product substitution issue [None]
